FAERS Safety Report 5350243-8 (Version None)
Quarter: 2007Q2

REPORT INFORMATION
  Report Type: 
  Country: None (occurrence: None)
  Receive Date: 20070521
  Receipt Date: 20070319
  Transmission Date: 20071010
  Serious: No
  Sender: FDA-Public Use
  Company Number: WAES 0703USA03667

PATIENT
  Age: 52 Year
  Sex: Female
  Weight: 116.5744 kg

DRUGS (6)
  1. JANUVIA [Suspect]
     Indication: DIABETES MELLITUS NON-INSULIN-DEPENDENT
     Dosage: SEE IMAGE
     Route: 048
     Dates: start: 20070226, end: 20070322
  2. JANUVIA [Suspect]
     Indication: DIABETES MELLITUS NON-INSULIN-DEPENDENT
     Dosage: SEE IMAGE
     Route: 048
     Dates: start: 20070329, end: 20070402
  3. SINGULAIR [Concomitant]
  4. TRICOR [Concomitant]
  5. ATENOLOL [Concomitant]
  6. LISINOPRIL [Concomitant]

REACTIONS (1)
  - HERPES ZOSTER [None]
